FAERS Safety Report 5086794-3 (Version None)
Quarter: 2006Q3

REPORT INFORMATION
  Report Type: 
  Country: None (occurrence: None)
  Receive Date: 20060823
  Receipt Date: 20060816
  Transmission Date: 20061208
  Serious: Yes (Hospitalization)
  Sender: FDA-Public Use
  Company Number: US-BRISTOL-MYERS SQUIBB COMPANY-13478359

PATIENT
  Age: 68 Year
  Sex: Male
  Weight: 52 kg

DRUGS (3)
  1. ERBITUX [Suspect]
     Indication: GASTRIC CANCER
     Route: 042
     Dates: start: 20060801, end: 20060801
  2. CISPLATIN [Suspect]
  3. IRINOTECAN HCL [Suspect]

REACTIONS (2)
  - MENTAL STATUS CHANGES [None]
  - SEPSIS [None]
